FAERS Safety Report 9043988 (Version 1)
Quarter: 2013Q1

REPORT INFORMATION
  Report Type: Report from Study
  Country: US (occurrence: US)
  Receive Date: 20130130
  Receipt Date: 20130130
  Transmission Date: 20140127
  Serious: No
  Sender: FDA-Public Use
  Company Number: US-ABBOTT-12P-163-0945151-00

PATIENT
  Age: 62 None
  Sex: Female
  Weight: 68.1 kg

DRUGS (9)
  1. HUMIRA 40 MG/0.8 ML PEN [Suspect]
     Indication: CROHN^S DISEASE
  2. FLUOXETINE [Concomitant]
     Indication: AFFECT LABILITY
  3. FLUOXETINE [Concomitant]
     Indication: DEPRESSION
  4. KLOR-CON [Concomitant]
     Indication: MINERAL SUPPLEMENTATION
  5. NAMENDA [Concomitant]
     Indication: AMNESIA
  6. NORVASC [Concomitant]
     Indication: HYPERTENSION
  7. PRILOSEC [Concomitant]
     Indication: ABDOMINAL DISCOMFORT
  8. ESTROGEN [Concomitant]
     Indication: HORMONE REPLACEMENT THERAPY
  9. ASPIRIN [Concomitant]
     Indication: PRODUCT USED FOR UNKNOWN INDICATION

REACTIONS (11)
  - Erythema nodosum [Not Recovered/Not Resolved]
  - Oedema peripheral [Not Recovered/Not Resolved]
  - Nodule [Not Recovered/Not Resolved]
  - Nodule [Not Recovered/Not Resolved]
  - Oedema peripheral [Not Recovered/Not Resolved]
  - Frequent bowel movements [Not Recovered/Not Resolved]
  - Diarrhoea [Not Recovered/Not Resolved]
  - Gastrointestinal inflammation [Unknown]
  - Abdominal tenderness [Not Recovered/Not Resolved]
  - Restless legs syndrome [Not Recovered/Not Resolved]
  - Crohn^s disease [Not Recovered/Not Resolved]
